FAERS Safety Report 6432720-1 (Version None)
Quarter: 2009Q4

REPORT INFORMATION
  Report Type: 
  Country: None (occurrence: None)
  Receive Date: 20091109
  Receipt Date: 20090817
  Transmission Date: 20100525
  Serious: No
  Sender: FDA-Public Use
  Company Number: US-BAYER-200930677NA

PATIENT
  Age: 62 Year

DRUGS (4)
  1. ULTRAVIST 300 [Suspect]
     Indication: COMPUTERISED TOMOGRAM ABDOMEN
     Dosage: TOTAL DAILY DOSE: 128 ML  UNIT DOSE: 200 ML
     Route: 042
     Dates: start: 20090817, end: 20090817
  2. FLOMAX [Concomitant]
  3. SIMVASTATIN [Concomitant]
  4. COLCHICINE [Concomitant]

REACTIONS (3)
  - BLOOD PRESSURE INCREASED [None]
  - NAUSEA [None]
  - VOMITING [None]
